FAERS Safety Report 20017063 (Version 16)
Quarter: 2022Q4

REPORT INFORMATION
  Report Type: Spontaneous
  Country: CA (occurrence: CA)
  Receive Date: 20211030
  Receipt Date: 20221111
  Transmission Date: 20230112
  Serious: Yes (Hospitalization, Other)
  Sender: FDA-Public Use
  Company Number: CA-CELLTRION INC.-2021CA014693

PATIENT

DRUGS (18)
  1. INFLECTRA [Suspect]
     Active Substance: INFLIXIMAB-DYYB
     Indication: Colitis ulcerative
     Dosage: 1 DF
  2. INFLECTRA [Suspect]
     Active Substance: INFLIXIMAB-DYYB
     Dosage: 400 MG, INDUCTION AT 0 , 2, 6 WEEKS THEN EVERY 8 WEEKS
     Route: 042
     Dates: start: 20210922, end: 20211102
  3. INFLECTRA [Suspect]
     Active Substance: INFLIXIMAB-DYYB
     Dosage: 300 MG
     Route: 042
     Dates: start: 20211005
  4. INFLECTRA [Suspect]
     Active Substance: INFLIXIMAB-DYYB
     Dosage: 400 MG, INDUCTION AT 0 , 2, 6 WEEKS THEN EVERY 8 WEEKS
     Route: 042
     Dates: start: 20211102
  5. INFLECTRA [Suspect]
     Active Substance: INFLIXIMAB-DYYB
     Dosage: 400 MG, EVERY 4 WEEKS
     Route: 042
     Dates: start: 20211203, end: 20220331
  6. INFLECTRA [Suspect]
     Active Substance: INFLIXIMAB-DYYB
     Dosage: 400 MG, EVERY 4 WEEKS
     Route: 042
     Dates: start: 20211230
  7. INFLECTRA [Suspect]
     Active Substance: INFLIXIMAB-DYYB
     Dosage: 400 MG, EVERY 4 WEEKS
     Route: 042
     Dates: start: 20220131
  8. INFLECTRA [Suspect]
     Active Substance: INFLIXIMAB-DYYB
     Dosage: 400 MG, EVERY 4 WEEKS
     Route: 042
     Dates: start: 20220301
  9. INFLECTRA [Suspect]
     Active Substance: INFLIXIMAB-DYYB
     Dosage: 400 MG, EVERY 4 WEEKS
     Route: 042
     Dates: start: 20220331
  10. INFLECTRA [Suspect]
     Active Substance: INFLIXIMAB-DYYB
     Dosage: 400 MG, EVERY 4 WEEKS
     Route: 042
     Dates: start: 20220428
  11. INFLECTRA [Suspect]
     Active Substance: INFLIXIMAB-DYYB
     Dosage: 800 MG, EVERY 4 WEEKS
     Route: 042
     Dates: start: 20220428
  12. INFLECTRA [Suspect]
     Active Substance: INFLIXIMAB-DYYB
     Dosage: 800 MG, EVERY 4 WEEKS
     Route: 042
     Dates: start: 20220526
  13. INFLECTRA [Suspect]
     Active Substance: INFLIXIMAB-DYYB
     Dosage: 800 MG, EVERY 4 WEEKS
     Route: 042
     Dates: start: 20220629
  14. INFLECTRA [Suspect]
     Active Substance: INFLIXIMAB-DYYB
     Dosage: 800 MG, EVERY 4 WEEKS
     Route: 042
     Dates: start: 20220802
  15. INFLECTRA [Suspect]
     Active Substance: INFLIXIMAB-DYYB
     Dosage: 800 MG, EVERY 4 WEEKS
     Route: 042
     Dates: start: 20221006
  16. APIXABAN [Concomitant]
     Active Substance: APIXABAN
     Dosage: 5 MG, DOSAGE FREQUENCY: UNKNOWN
     Route: 048
     Dates: start: 20211017
  17. AZATHIOPRINE [Concomitant]
     Active Substance: AZATHIOPRINE
     Dosage: 100 MG, DOSAGE FREQUENCY: UNKNOWN
     Route: 048
  18. MESALAMINE [Concomitant]
     Active Substance: MESALAMINE
     Dosage: 1 G, DOSAGE FREQUENCY UNKNOWN
     Route: 048
     Dates: start: 20220117

REACTIONS (18)
  - Pulmonary embolism [Unknown]
  - Colitis ulcerative [Unknown]
  - Heart rate decreased [Not Recovered/Not Resolved]
  - Thrombosis [Unknown]
  - Colectomy total [Unknown]
  - Off label use [Unknown]
  - Off label use [Unknown]
  - Inappropriate schedule of product administration [Unknown]
  - Hypoaesthesia [Not Recovered/Not Resolved]
  - Dyspnoea exertional [Unknown]
  - Palpitations [Unknown]
  - Condition aggravated [Not Recovered/Not Resolved]
  - Weight increased [Unknown]
  - Weight decreased [Unknown]
  - Arthralgia [Unknown]
  - Loss of personal independence in daily activities [Unknown]
  - Pain [Unknown]
  - SARS-CoV-2 test positive [Not Recovered/Not Resolved]

NARRATIVE: CASE EVENT DATE: 20210101
